FAERS Safety Report 24165774 (Version 1)
Quarter: 2024Q3

REPORT INFORMATION
  Report Type: Report from Study
  Country: IN (occurrence: None)
  Receive Date: 20240802
  Receipt Date: 20240802
  Transmission Date: 20241017
  Serious: Yes (Other)
  Sender: ASTRAZENECA
  Company Number: 2021A821105

PATIENT
  Age: 27 Year
  Sex: Female

DRUGS (1)
  1. SYMBICORT [Suspect]
     Active Substance: BUDESONIDE\FORMOTEROL FUMARATE DIHYDRATE
     Dosage: UNKNOWN UG TWO TIMES A DAY
     Route: 055
     Dates: start: 20211021

REACTIONS (1)
  - Choking sensation [Unknown]

NARRATIVE: CASE EVENT DATE: 20211021
